FAERS Safety Report 7957018-1 (Version None)
Quarter: 2011Q4

REPORT INFORMATION
  Report Type: 
  Country: None (occurrence: None)
  Receive Date: 20111205
  Receipt Date: 20111205
  Transmission Date: 20120403
  Serious: Yes (Hospitalization)
  Sender: FDA-Public Use
  Company Number: None

PATIENT
  Age: 57 Year
  Sex: Male
  Weight: 122.46 kg

DRUGS (2)
  1. LOPID [Concomitant]
     Indication: DIABETES MELLITUS
     Dosage: 600 MG
     Route: 048
     Dates: start: 20110321, end: 20111007
  2. ZOCOR [Suspect]
     Indication: CARDIAC DISORDER
     Dosage: 40 MG
     Route: 048
     Dates: start: 20090321, end: 20111122

REACTIONS (7)
  - PAIN IN EXTREMITY [None]
  - MUSCULOSKELETAL STIFFNESS [None]
  - BLOOD CREATINE PHOSPHOKINASE INCREASED [None]
  - DRUG INTERACTION [None]
  - ARTHRALGIA [None]
  - MYALGIA [None]
  - BACK PAIN [None]
